FAERS Safety Report 7314276-4 (Version None)
Quarter: 2011Q1

REPORT INFORMATION
  Report Type: 
  Country: None (occurrence: None)
  Receive Date: 20110225
  Receipt Date: 20100805
  Transmission Date: 20110831
  Serious: No
  Sender: FDA-Public Use
  Company Number: US-MYLANLABS-2010S1011902

PATIENT
  Age: 29 Year
  Sex: Female
  Weight: 71.22 kg

DRUGS (4)
  1. ORAL CONTRACEPTIVE NOS [Concomitant]
  2. AMNESTEEM [Suspect]
     Indication: ACNE CYSTIC
     Dates: start: 20100401, end: 20100615
  3. CLARAVIS [Suspect]
     Indication: ACNE CYSTIC
     Dates: start: 20100215, end: 20100301
  4. CLARAVIS [Suspect]
     Dates: start: 20100301, end: 20100401

REACTIONS (3)
  - MOOD SWINGS [None]
  - DRUG INEFFECTIVE [None]
  - ARTHRALGIA [None]
